FAERS Safety Report 8776445 (Version 2)
Quarter: 2012Q4

REPORT INFORMATION
  Report Type: 
  Country: US (occurrence: US)
  Receive Date: 20120910
  Receipt Date: 20120928
  Transmission Date: 20130627
  Serious: Yes (Death)
  Sender: FDA-Public Use
  Company Number: PHEH2012US017425

PATIENT
  Sex: Male

DRUGS (11)
  1. TOBI [Suspect]
     Indication: CYSTIC FIBROSIS
     Dosage: 300 ug, BID
     Dates: start: 20101203, end: 20120822
  2. MAXAIR [Concomitant]
  3. ALBUTEROL [Concomitant]
  4. ADVAIR [Concomitant]
  5. QUETIAPINE [Concomitant]
  6. FLUTICASONE [Concomitant]
  7. CREON [Concomitant]
  8. XOPENEX [Concomitant]
  9. PULMOZYME [Concomitant]
  10. AZITHROMYCIN [Concomitant]
  11. LANSOPRAZOLE [Concomitant]

REACTIONS (2)
  - Disease progression [Fatal]
  - Cystic fibrosis [None]
